FAERS Safety Report 7904745-8 (Version None)
Quarter: 2011Q4

REPORT INFORMATION
  Report Type: 
  Country: None (occurrence: None)
  Receive Date: 20111109
  Receipt Date: 20111101
  Transmission Date: 20120403
  Serious: Yes (Other)
  Sender: FDA-Public Use
  Company Number: US-PFIZER INC-2011271934

PATIENT
  Sex: Male

DRUGS (4)
  1. USTEKINUMAB [Suspect]
     Indication: PSORIASIS
     Dosage: 90 MG, UNK
     Route: 058
     Dates: start: 20110725
  2. IBUPROFEN [Suspect]
     Indication: PRODUCT USED FOR UNKNOWN INDICATION
     Dosage: UNK
     Route: 048
     Dates: start: 20110801
  3. NASAL DECONGESTANTS FOR SYSTEMIC USE [Concomitant]
  4. USTEKINUMAB [Suspect]
     Dosage: 90 MG, UNK
     Dates: start: 20110819

REACTIONS (2)
  - DERMATITIS ALLERGIC [None]
  - LUPUS-LIKE SYNDROME [None]
